FAERS Safety Report 14826145 (Version 1)
Quarter: 2018Q2

REPORT INFORMATION
  Report Type: Spontaneous
  Country: CH (occurrence: CH)
  Receive Date: 20180430
  Receipt Date: 20180430
  Transmission Date: 20180711
  Serious: Yes (Other)
  Sender: FDA-Public Use
  Company Number: CH-ROCHE-2109838

PATIENT
  Age: 64 Year
  Sex: Male

DRUGS (11)
  1. SOLU-MEDROL [Concomitant]
     Active Substance: METHYLPREDNISOLONE SODIUM SUCCINATE
     Indication: VASCULITIS
     Route: 042
     Dates: start: 20170923, end: 20170925
  2. IMUREK [Concomitant]
     Active Substance: AZATHIOPRINE
     Indication: VASCULITIS
  3. CELLCEPT [Suspect]
     Active Substance: MYCOPHENOLATE MOFETIL\MYCOPHENOLATE MOFETIL HYDROCHLORIDE
     Indication: VASCULITIS
     Route: 065
  4. CYCLOPHOSPHAMIDE. [Concomitant]
     Active Substance: CYCLOPHOSPHAMIDE
     Indication: VASCULITIS
  5. ACTEMRA [Suspect]
     Active Substance: TOCILIZUMAB
     Indication: VASCULITIS
     Route: 065
     Dates: start: 20170726, end: 20170726
  6. MABTHERA [Suspect]
     Active Substance: RITUXIMAB
     Indication: VASCULITIS
     Route: 042
     Dates: start: 20180320, end: 20180320
  7. PREDNISONE. [Concomitant]
     Active Substance: PREDNISONE
     Indication: VASCULITIS
     Route: 065
     Dates: start: 201603
  8. HUMIRA [Concomitant]
     Active Substance: ADALIMUMAB
     Indication: VASCULITIS
     Route: 065
     Dates: end: 201802
  9. XARELTO [Concomitant]
     Active Substance: RIVAROXABAN
  10. ANAKINRA [Concomitant]
     Active Substance: ANAKINRA
     Indication: VASCULITIS
  11. ENDOXAN [Concomitant]
     Active Substance: CYCLOPHOSPHAMIDE
     Indication: VASCULITIS

REACTIONS (3)
  - Off label use [Unknown]
  - Bicytopenia [Unknown]
  - Respiratory tract infection [Unknown]

NARRATIVE: CASE EVENT DATE: 201709
